FAERS Safety Report 21113290 (Version 1)
Quarter: 2022Q3

REPORT INFORMATION
  Report Type: Report from Study
  Country: MX (occurrence: MX)
  Receive Date: 20220721
  Receipt Date: 20220721
  Transmission Date: 20221026
  Serious: Yes (Other)
  Sender: FDA-Public Use
  Company Number: MX-NOVARTISPH-NVSC2022MX165354

PATIENT
  Sex: Female

DRUGS (1)
  1. EXFORGE [Suspect]
     Active Substance: AMLODIPINE BESYLATE\VALSARTAN
     Indication: Hypertension
     Route: 065

REACTIONS (4)
  - Deafness [Unknown]
  - Peripheral swelling [Not Recovered/Not Resolved]
  - Pterygium [Not Recovered/Not Resolved]
  - Visual impairment [Unknown]
